FAERS Safety Report 10949304 (Version 3)
Quarter: 2015Q2

REPORT INFORMATION
  Report Type: Spontaneous
  Country: GB (occurrence: None)
  Receive Date: 20150320
  Receipt Date: 20150420
  Transmission Date: 20150821
  Serious: Yes (Other)
  Sender: FDA-Public Use
  Company Number: FK201501278

PATIENT
  Age: 22 Year
  Sex: Male
  Weight: 55 kg

DRUGS (3)
  1. LACTULOSE (MANUFACTURER UNKNOWN) (LACTULOSE) (LACTULOSE) [Suspect]
     Active Substance: LACTULOSE
     Indication: BOWEL MOVEMENT IRREGULARITY
     Route: 048
  2. EPILIM [Suspect]
     Active Substance: VALPROATE SODIUM
     Indication: EPILEPSY
     Route: 048
     Dates: start: 201411
  3. FYBOGEL [Suspect]
     Active Substance: PLANTAGO OVATA SEED
     Indication: EPILEPSY
     Dosage: 1 DOSAGE FORM, 1 IN 2 D

REACTIONS (2)
  - Seizure [None]
  - Drug ineffective [None]

NARRATIVE: CASE EVENT DATE: 201411
